FAERS Safety Report 4497380-8 (Version None)
Quarter: 2004Q4

REPORT INFORMATION
  Report Type: 
  Country: None (occurrence: None)
  Receive Date: 20041104
  Receipt Date: 20041027
  Transmission Date: 20050328
  Serious: Yes (Death)
  Sender: FDA-Public Use
  Company Number: 2004-121654-NL

PATIENT
  Age: 46 Year
  Sex: Female

DRUGS (15)
  1. HEXADROL PHOSPHATE [Suspect]
     Indication: MULTIPLE MYELOMA
     Dosage: WEEK 1 TREATMENT
     Dates: start: 20011216, end: 20011218
  2. GENASENSE [Suspect]
     Indication: MULTIPLE MYELOMA
     Dosage: WEEK 1 TREATMENT
     Dates: start: 20011212, end: 20011219
  3. GENASENSE [Suspect]
     Indication: MULTIPLE MYELOMA
     Dosage: WEEK 3 TREATMENT
     Dates: start: 20011226, end: 20011229
  4. PAMIDRONATE DISODIUM [Concomitant]
  5. TRIMETHOPRIM-SULFAMETHOXAZOLE [Concomitant]
  6. RANITIDINE [Concomitant]
  7. SENNA [Concomitant]
  8. VITAMIN 6 [Concomitant]
  9. LEVOTHYROXINE SODIUM [Concomitant]
  10. MEDROXYPROGESTERONE ACETATE [Concomitant]
  11. VELVET GLOVE [Concomitant]
  12. WARFARIN SODIUM [Concomitant]
  13. IBUPROFEN [Concomitant]
  14. ACETAMINOPHEN [Concomitant]
  15. OXYCODONE HCL [Concomitant]

REACTIONS (4)
  - BEDRIDDEN [None]
  - MEDICATION ERROR [None]
  - PAIN IN EXTREMITY [None]
  - REFUSAL OF TREATMENT BY PATIENT [None]
